FAERS Safety Report 4493224-9 (Version None)
Quarter: 2004Q4

REPORT INFORMATION
  Report Type: 
  Country: None (occurrence: None)
  Receive Date: 20041025
  Receipt Date: 20040901
  Transmission Date: 20050328
  Serious: No
  Sender: FDA-Public Use
  Company Number: WSDF_00411

PATIENT
  Age: 17 Year
  Sex: Female
  Weight: 120.5 kg

DRUGS (1)
  1. WINRHO SDF [Suspect]
     Indication: IDIOPATHIC THROMBOCYTOPENIC PURPURA
     Dosage: 48.13 MCG/KG ONCE IV
     Route: 042
     Dates: start: 20040520, end: 20040520

REACTIONS (1)
  - HAEMOGLOBIN DECREASED [None]
